FAERS Safety Report 9253145 (Version 3)
Quarter: 2013Q3

REPORT INFORMATION
  Report Type: Spontaneous
  Country: BR (occurrence: BR)
  Receive Date: 20130424
  Receipt Date: 20130718
  Transmission Date: 20140515
  Serious: Yes (Other)
  Sender: FDA-Public Use
  Company Number: PHHY2012BR051909

PATIENT
  Age: 33 Year
  Sex: Female

DRUGS (1)
  1. BUFFERIN [Suspect]
     Indication: PROPHYLAXIS
     Dosage: 1 DF, QD

REACTIONS (3)
  - Abortion spontaneous [Unknown]
  - Incorrect drug administration duration [Unknown]
  - Maternal exposure during pregnancy [Unknown]
